FAERS Safety Report 5233848-4 (Version None)
Quarter: 2007Q1

REPORT INFORMATION
  Report Type: 
  Country: None (occurrence: None)
  Receive Date: 20061208
  Receipt Date: 20060410
  Transmission Date: 20070707
  Serious: Yes (Other)
  Sender: FDA-Public Use
  Company Number: 2006UW04580

PATIENT
  Age: 85 Year
  Sex: Female
  Weight: 88.45 kg

DRUGS (8)
  1. CRESTOR [Suspect]
     Indication: HYPERCHOLESTEROLAEMIA
     Dosage: 5 MG PO
     Route: 048
     Dates: start: 20060201
  2. DILTIAZEM [Concomitant]
  3. ATENOLOL [Concomitant]
  4. CHOLESTYRAMINE [Concomitant]
  5. CHLOROTHIAZIDE [Concomitant]
  6. LEVOTHYROXINE SODIUM [Concomitant]
  7. ISORDIL [Concomitant]
  8. HYDROCHLOROTHIAZIDE [Concomitant]

REACTIONS (1)
  - BLEEDING TIME PROLONGED [None]
